FAERS Safety Report 17249067 (Version 2)
Quarter: 2020Q1

REPORT INFORMATION
  Report Type: Other
  Country: US (occurrence: US)
  Receive Date: 20200108
  Receipt Date: 20200203
  Transmission Date: 20200409
  Serious: No
  Sender: FDA-Public Use
  Company Number: US-AMAG PHARMACEUTICALS, INC.-AMAG201906372

PATIENT
  Age: 33 Year
  Sex: Female
  Weight: 90.8 kg

DRUGS (1)
  1. MAKENA [Suspect]
     Active Substance: HYDROXYPROGESTERONE CAPROATE
     Indication: PREMATURE DELIVERY
     Dosage: 250MG/ML, WEEKLY
     Route: 058
     Dates: start: 20191129, end: 20191219

REACTIONS (7)
  - Injection site rash [Recovered/Resolved]
  - Hypersensitivity [Unknown]
  - Injection site urticaria [Not Recovered/Not Resolved]
  - Injection site nodule [Recovered/Resolved]
  - Peripheral swelling [Recovered/Resolved]
  - Injection site pruritus [Recovered/Resolved]
  - Injection site erythema [Not Recovered/Not Resolved]

NARRATIVE: CASE EVENT DATE: 20191206
